FAERS Safety Report 15241439 (Version 1)
Quarter: 2018Q3

REPORT INFORMATION
  Report Type: Spontaneous
  Country: US (occurrence: US)
  Receive Date: 20180711
  Receipt Date: 20180711
  Transmission Date: 20181010
  Serious: No
  Sender: FDA-Public Use
  Company Number: None

PATIENT
  Age: 52 Year
  Sex: Female

DRUGS (1)
  1. ZARXIO [Suspect]
     Active Substance: FILGRASTIM-SNDZ

REACTIONS (2)
  - Muscle spasms [None]
  - Myalgia [None]

NARRATIVE: CASE EVENT DATE: 20180711
